FAERS Safety Report 16910832 (Version 1)
Quarter: 2019Q4

REPORT INFORMATION
  Report Type: Spontaneous
  Country: GB (occurrence: GB)
  Receive Date: 20191012
  Receipt Date: 20191012
  Transmission Date: 20200122
  Serious: Yes (Disabling)
  Sender: FDA-Public Use
  Company Number: GB-009507513-1910GBR007295

PATIENT
  Age: 68 Year
  Sex: Male

DRUGS (1)
  1. MIRTAZAPINE. [Suspect]
     Active Substance: MIRTAZAPINE
     Indication: DEPRESSION
     Route: 048
     Dates: start: 20190906, end: 20190910

REACTIONS (6)
  - Tearfulness [Recovered/Resolved]
  - Depression suicidal [Recovered/Resolved]
  - Anger [Recovering/Resolving]
  - Hyperhidrosis [Recovered/Resolved]
  - Psychomotor hyperactivity [Recovering/Resolving]
  - Dizziness [Recovered/Resolved]

NARRATIVE: CASE EVENT DATE: 20190906
